FAERS Safety Report 5004455-3 (Version None)
Quarter: 2006Q2

REPORT INFORMATION
  Report Type: 
  Country: None (occurrence: None)
  Receive Date: 20060511
  Receipt Date: 20060505
  Transmission Date: 20061013
  Serious: Yes (Hospitalization)
  Sender: FDA-Public Use
  Company Number: 2004119435

PATIENT
  Age: 47 Year
  Sex: Male
  Weight: 110.2241 kg

DRUGS (12)
  1. EPLERENONE (EPLERENONE) [Suspect]
     Indication: CARDIAC FAILURE CONGESTIVE
     Dosage: 25 MG (25 MG, ONCE DAILY), ORAL
     Route: 048
     Dates: start: 20041012, end: 20041229
  2. ASPIRIN [Concomitant]
  3. ALLOPURINOL [Concomitant]
  4. CARVEDILOL [Concomitant]
  5. DIGOXIN [Concomitant]
  6. FENOFIBRATE [Concomitant]
  7. FUROSEMIDE [Concomitant]
  8. GABAPENTIN [Concomitant]
  9. INSULIN GLARGINE [Concomitant]
  10. INSULIN LISPRO [Concomitant]
  11. LOSARTAN POTASSIUM [Concomitant]
  12. POTASSIUM CHLORIDE [Concomitant]

REACTIONS (11)
  - ARRHYTHMIA SUPRAVENTRICULAR [None]
  - ATRIAL FIBRILLATION [None]
  - BLOOD ALBUMIN DECREASED [None]
  - CARDIAC FAILURE [None]
  - CONDITION AGGRAVATED [None]
  - HAEMODIALYSIS [None]
  - PROTEIN TOTAL DECREASED [None]
  - RENAL FAILURE [None]
  - VENTRICULAR ARRHYTHMIA [None]
  - VENTRICULAR EXTRASYSTOLES [None]
  - WEIGHT INCREASED [None]
